FAERS Safety Report 7335314-9 (Version None)
Quarter: 2011Q1

REPORT INFORMATION
  Report Type: 
  Country: None (occurrence: None)
  Receive Date: 20110307
  Receipt Date: 20110224
  Transmission Date: 20110831
  Serious: Yes (Hospitalization)
  Sender: FDA-Public Use
  Company Number: PHHO2011US03684

PATIENT
  Sex: Female
  Weight: 76.36 kg

DRUGS (2)
  1. AFINITOR [Suspect]
     Indication: GLIOBLASTOMA
     Dosage: 70 MG, UNK
     Route: 048
     Dates: start: 20110110, end: 20110207
  2. TEMOZOLOMIDE [Suspect]
     Indication: GLIOBLASTOMA
     Dosage: 75 MG/M2, UNK
     Route: 048
     Dates: start: 20110110, end: 20110211

REACTIONS (4)
  - HYPOTENSION [None]
  - ASTHENIA [None]
  - STOMATITIS [None]
  - DEHYDRATION [None]
